FAERS Safety Report 19668189 (Version 1)
Quarter: 2021Q3

REPORT INFORMATION
  Report Type: Spontaneous
  Country: US (occurrence: US)
  Receive Date: 20210806
  Receipt Date: 20210806
  Transmission Date: 20211014
  Serious: No
  Sender: FDA-Public Use
  Company Number: US-TORRENT-00011198

PATIENT
  Age: 89 Year
  Sex: Male
  Weight: 70 kg

DRUGS (1)
  1. PANTOPRAZOLE SODIUM. [Suspect]
     Active Substance: PANTOPRAZOLE SODIUM
     Indication: PRODUCT USED FOR UNKNOWN INDICATION
     Dosage: ONCE A DAY BY MOUTH
     Route: 048

REACTIONS (3)
  - Lichenoid keratosis [Not Recovered/Not Resolved]
  - Lichen planus [Not Recovered/Not Resolved]
  - Rash [Not Recovered/Not Resolved]
